FAERS Safety Report 9378054 (Version 3)
Quarter: 2013Q3

REPORT INFORMATION
  Report Type: Spontaneous
  Country: US (occurrence: US)
  Receive Date: 20130701
  Receipt Date: 20130723
  Transmission Date: 20140515
  Serious: Yes (Other)
  Sender: FDA-Public Use
  Company Number: US-PURDUE-USA-2013-0104061

PATIENT
  Age: 65 Year
  Sex: Male
  Weight: 80.73 kg

DRUGS (5)
  1. OXYCONTIN (NDA 22-272) [Suspect]
     Indication: PLANTAR FASCIITIS
     Dosage: 80 MG, BID
     Route: 048
     Dates: start: 2009
  2. OXYCONTIN (NDA 22-272) [Suspect]
     Indication: OSTEOARTHRITIS
  3. OXYCONTIN (NDA 22-272) [Suspect]
     Indication: FIBROMATOSIS
  4. OXYCONTIN (NDA 22-272) [Suspect]
     Indication: PAIN
  5. RITALIN [Concomitant]
     Indication: ATTENTION DEFICIT/HYPERACTIVITY DISORDER

REACTIONS (2)
  - Nephrolithiasis [Recovered/Resolved]
  - Blood urine present [Recovered/Resolved]
